FAERS Safety Report 8241548-1 (Version None)
Quarter: 2012Q1

REPORT INFORMATION
  Report Type: 
  Country: None (occurrence: None)
  Receive Date: 20120328
  Receipt Date: 20120103
  Transmission Date: 20120608
  Serious: No
  Sender: FDA-Public Use
  Company Number: US-COVIDIEN/TYCO HEALTHCARE/MALLINCKRODT-T201200160

PATIENT
  Age: 56 Year
  Sex: Male
  Weight: 99.79 kg

DRUGS (2)
  1. MUSCLE RELAXANTS [Concomitant]
  2. METHADONE HCL [Suspect]
     Indication: PAIN
     Dosage: THREE 10 MG TABLETS, BID
     Route: 051

REACTIONS (2)
  - HYPOTENSION [None]
  - INCORRECT ROUTE OF DRUG ADMINISTRATION [None]
